FAERS Safety Report 5684373-8 (Version None)
Quarter: 2008Q1

REPORT INFORMATION
  Report Type: 
  Country: None (occurrence: None)
  Receive Date: 20080328
  Receipt Date: 20080326
  Transmission Date: 20080703
  Serious: Yes (Other)
  Sender: FDA-Public Use
  Company Number: B0513893A

PATIENT
  Age: 1 Year
  Sex: Female
  Weight: 9 kg

DRUGS (3)
  1. MODACIN [Suspect]
     Indication: DRUG USE FOR UNKNOWN INDICATION
     Dosage: 500MG TWICE PER DAY
     Route: 042
     Dates: start: 20080319, end: 20080320
  2. PENTCILLIN [Concomitant]
     Dosage: 1000MG PER DAY
     Route: 042
     Dates: start: 20080317, end: 20080318
  3. DECADRON [Concomitant]
     Dosage: 3.5MG PER DAY
     Dates: start: 20080319, end: 20080319

REACTIONS (1)
  - RENAL FAILURE [None]
